FAERS Safety Report 19813421 (Version 1)
Quarter: 2021Q3

REPORT INFORMATION
  Report Type: Spontaneous
  Country: US (occurrence: US)
  Receive Date: 20210907
  Receipt Date: 20210907
  Transmission Date: 20211014
  Serious: No
  Sender: FDA-Public Use
  Company Number: None

PATIENT
  Age: 24 Year
  Sex: Male
  Weight: 96 kg

DRUGS (1)
  1. LISINOPRIL (LISINOPRIL 10MG TAB) [Suspect]
     Active Substance: LISINOPRIL
     Indication: HYPERTENSION
     Route: 048
     Dates: start: 20210226, end: 20210517

REACTIONS (3)
  - Cough [None]
  - Angioedema [None]
  - Wheezing [None]

NARRATIVE: CASE EVENT DATE: 20210517
